FAERS Safety Report 8245450-0 (Version None)
Quarter: 2012Q1

REPORT INFORMATION
  Report Type: 
  Country: None (occurrence: None)
  Receive Date: 20120329
  Receipt Date: 20120323
  Transmission Date: 20120608
  Serious: Yes (Other)
  Sender: FDA-Public Use
  Company Number: US-MERCK-1111USA02502

PATIENT
  Age: 48 Year
  Sex: Female

DRUGS (1)
  1. FOSAMAX [Suspect]
     Indication: OSTEOPOROSIS
     Route: 048
     Dates: start: 19990101

REACTIONS (11)
  - GINGIVAL BLEEDING [None]
  - TOOTH DISORDER [None]
  - TEMPOROMANDIBULAR JOINT SYNDROME [None]
  - INFECTION [None]
  - ORAL SURGERY [None]
  - OSTEONECROSIS OF JAW [None]
  - FEMUR FRACTURE [None]
  - ANKLE FRACTURE [None]
  - ASTHMA [None]
  - FRACTURE [None]
  - TOOTH FRACTURE [None]
